FAERS Safety Report 4314523-7 (Version None)
Quarter: 2004Q1

REPORT INFORMATION
  Report Type: 
  Country: None (occurrence: None)
  Receive Date: 20040308
  Receipt Date: 20040226
  Transmission Date: 20041129
  Serious: Yes (Other)
  Sender: FDA-Public Use
  Company Number: 2004201405DE

PATIENT
  Age: 47 Year
  Sex: Female
  Weight: 59 kg

DRUGS (2)
  1. FARMORUBICIN A (EPIRUBICIN HYDROCHLORIDE)POWDER, STERILE [Suspect]
     Indication: BREAST CANCER
     Dosage: 747, CYCLIC, IV
     Route: 042
     Dates: start: 20040220
  2. CYCLOPHOSPHAMIDE [Suspect]
     Indication: BREAST CANCER
     Dosage: 984, CYCLIC, IV
     Route: 042
     Dates: start: 20040220

REACTIONS (3)
  - CARDIOVASCULAR DISORDER [None]
  - CIRCULATORY COLLAPSE [None]
  - DYSTONIA [None]
